FAERS Safety Report 15149688 (Version 2)
Quarter: 2019Q2

REPORT INFORMATION
  Report Type: Spontaneous
  Country: US (occurrence: US)
  Receive Date: 20180716
  Receipt Date: 20190401
  Transmission Date: 20190711
  Serious: No
  Sender: FDA-Public Use
  Company Number: US-VANDA PHARMACEUTICALS, INC-2018TASUS002201

PATIENT
  Age: 70 Year
  Sex: Female

DRUGS (1)
  1. HETLIOZ [Suspect]
     Active Substance: TASIMELTEON
     Indication: BLINDNESS
     Dosage: ONE CAPSULE EVERY 24 HOURS ONE HOUR BEFORE BEDTIME AT THE SAME TIME EVERY NIGHT WITHOUT FOOD

REACTIONS (1)
  - Product dose omission [Unknown]
